FAERS Safety Report 13929486 (Version 1)
Quarter: 2017Q3

REPORT INFORMATION
  Report Type: Spontaneous
  Country: US (occurrence: None)
  Receive Date: 20170901
  Receipt Date: 20170901
  Transmission Date: 20171127
  Serious: No
  Sender: FDA-Public Use
  Company Number: None

PATIENT
  Age: 69 Year
  Sex: Female

DRUGS (1)
  1. IBRANCE [Suspect]
     Active Substance: PALBOCICLIB
     Indication: BREAST CANCER
     Dosage: 100MG DAILY FOR 3 WEEKS ON, 1 WEEK OFF BY MOUTH
     Route: 048
     Dates: start: 20170630

REACTIONS (2)
  - Rash [None]
  - Glossodynia [None]

NARRATIVE: CASE EVENT DATE: 20170830
